FAERS Safety Report 10954483 (Version 1)
Quarter: 2015Q1

REPORT INFORMATION
  Report Type: Spontaneous
  Country: GB (occurrence: GB)
  Receive Date: 20150325
  Receipt Date: 20150325
  Transmission Date: 20150721
  Serious: Yes (Other)
  Sender: FDA-Public Use
  Company Number: GB-BAYER-2015-044913

PATIENT
  Age: 76 Year
  Sex: Female
  Weight: 85 kg

DRUGS (5)
  1. ZOPICLONE [Concomitant]
     Active Substance: ZOPICLONE
     Dosage: 1 UNK, UNK
     Dates: start: 20110503, end: 20141215
  2. AMITRIPTYLINE HYDROCHLORIDE. [Concomitant]
     Active Substance: AMITRIPTYLINE HYDROCHLORIDE
     Indication: NEURALGIA
     Dosage: UNK UNK, PRN
     Dates: start: 20141215
  3. OMEPRAZOLE. [Concomitant]
     Active Substance: OMEPRAZOLE
     Dosage: 1 DF, QD
     Dates: start: 20141215, end: 20150112
  4. ACETYLSALICYLIC ACID (} 100 MG) [Suspect]
     Active Substance: ASPIRIN
     Dosage: 1 DF, QD
     Dates: start: 20130607
  5. BISOPROLOL [Concomitant]
     Active Substance: BISOPROLOL
     Dosage: 1 DF, QD
     Dates: start: 20141127

REACTIONS (1)
  - Contusion [Recovered/Resolved]

NARRATIVE: CASE EVENT DATE: 20150226
